FAERS Safety Report 25502828 (Version 1)
Quarter: 2025Q3

REPORT INFORMATION
  Report Type: Spontaneous
  Country: US (occurrence: US)
  Receive Date: 20250702
  Receipt Date: 20250702
  Transmission Date: 20251021
  Serious: No
  Sender: SUNOVION
  Company Number: US-SMPA-2025SPA007153AA

PATIENT

DRUGS (1)
  1. ORGOVYX [Suspect]
     Active Substance: RELUGOLIX
     Indication: Prostate cancer
     Route: 048
     Dates: start: 202411

REACTIONS (3)
  - Micturition disorder [Not Recovered/Not Resolved]
  - Middle insomnia [Not Recovered/Not Resolved]
  - Hot flush [Not Recovered/Not Resolved]
